FAERS Safety Report 11393480 (Version 3)
Quarter: 2015Q4

REPORT INFORMATION
  Report Type: Report from Study
  Country: US (occurrence: US)
  Receive Date: 20150818
  Receipt Date: 20151016
  Transmission Date: 20160304
  Serious: Yes (Hospitalization)
  Sender: FDA-Public Use
  Company Number: US-ACTELION-A-US2015-122337

PATIENT
  Age: 83 Year
  Sex: Male

DRUGS (2)
  1. MACITENTAN [Suspect]
     Active Substance: MACITENTAN
     Indication: PULMONARY ARTERIAL HYPERTENSION
     Dosage: 10 MG, QD
     Route: 048
  2. ADCIRCA [Concomitant]
     Active Substance: TADALAFIL

REACTIONS (7)
  - Colon neoplasm [Unknown]
  - Colon operation [Unknown]
  - Clostridium difficile infection [Unknown]
  - Fluid retention [Unknown]
  - Renal failure [Unknown]
  - Dialysis [Unknown]
  - Staphylococcal infection [Unknown]
